FAERS Safety Report 6522588-7 (Version None)
Quarter: 2009Q4

REPORT INFORMATION
  Report Type: 
  Country: None (occurrence: None)
  Receive Date: 20091230
  Receipt Date: 20091221
  Transmission Date: 20100525
  Serious: Yes (Hospitalization)
  Sender: FDA-Public Use
  Company Number: GB-AMGEN-UK378036

PATIENT
  Sex: Female
  Weight: 62.4 kg

DRUGS (2)
  1. PANITUMUMAB [Suspect]
     Indication: COLORECTAL CANCER
     Route: 042
     Dates: start: 20081205, end: 20091109
  2. IRINOTECAN [Concomitant]
     Route: 042
     Dates: start: 20081205, end: 20091109

REACTIONS (1)
  - VENOUS OCCLUSION [None]
